FAERS Safety Report 13207180 (Version 1)
Quarter: 2017Q1

REPORT INFORMATION
  Report Type: Spontaneous
  Country: US (occurrence: US)
  Receive Date: 20170209
  Receipt Date: 20170209
  Transmission Date: 20170428
  Serious: Yes (Hospitalization)
  Sender: FDA-Public Use
  Company Number: None

PATIENT
  Age: 59 Year
  Sex: Female
  Weight: 166.9 kg

DRUGS (29)
  1. MAGNESIUM [Concomitant]
     Active Substance: MAGNESIUM
  2. MYCOPHENOLATE [Concomitant]
     Active Substance: MYCOPHENOLIC ACID
  3. ATORVASTATIN [Concomitant]
     Active Substance: ATORVASTATIN
  4. ENOXAPARIN [Concomitant]
     Active Substance: ENOXAPARIN
  5. POLYETHYLENE GLYCOL LAXATIVE [Concomitant]
  6. MAGNESIUM [Concomitant]
     Active Substance: MAGNESIUM
  7. HYDROCHLOROTHIAZIDE. [Concomitant]
     Active Substance: HYDROCHLOROTHIAZIDE
  8. LEVOTHYROXINE. [Concomitant]
     Active Substance: LEVOTHYROXINE
  9. PREDNISONE. [Concomitant]
     Active Substance: PREDNISONE
  10. MONTELUKAST [Concomitant]
     Active Substance: MONTELUKAST SODIUM
  11. ONDANSETRON [Concomitant]
     Active Substance: ONDANSETRON
  12. SENNA-DOCUSATE [Concomitant]
  13. CALCIUM GLUCONATE. [Concomitant]
     Active Substance: CALCIUM GLUCONATE
  14. DILTIAZEM. [Concomitant]
     Active Substance: DILTIAZEM
  15. HEPARIN [Concomitant]
     Active Substance: HEPARIN SODIUM
  16. POTASSIUM CHLORIDE. [Concomitant]
     Active Substance: POTASSIUM CHLORIDE
  17. FUROSEMIDE. [Concomitant]
     Active Substance: FUROSEMIDE
  18. ALBUTEROL HFA INHALER [Concomitant]
  19. INSULIN DEGLUDEC [Concomitant]
     Active Substance: INSULIN DEGLUDEC
  20. NOVOLOG [Concomitant]
     Active Substance: INSULIN ASPART
  21. MORPHINE INJECTION [Concomitant]
     Active Substance: MORPHINE
  22. METOPROLOL TARTRATE. [Concomitant]
     Active Substance: METOPROLOL TARTRATE
  23. AMIODARONE [Concomitant]
     Active Substance: AMIODARONE
  24. CALCIUM-VITAMIN D [Concomitant]
  25. OMEPRAZOLE. [Concomitant]
     Active Substance: OMEPRAZOLE
  26. SITAGLIPTIN [Concomitant]
     Active Substance: SITAGLIPTIN
  27. PANTOPRAZOLE [Concomitant]
     Active Substance: PANTOPRAZOLE SODIUM
  28. TRADJENTA [Suspect]
     Active Substance: LINAGLIPTIN
     Indication: TYPE 2 DIABETES MELLITUS
     Route: 048
     Dates: start: 20170118, end: 20170121
  29. NORCO [Concomitant]
     Active Substance: ACETAMINOPHEN\HYDROCODONE BITARTRATE

REACTIONS (3)
  - Multiple organ dysfunction syndrome [None]
  - Mental status changes [None]
  - Pancreatitis acute [None]

NARRATIVE: CASE EVENT DATE: 20170118
